FAERS Safety Report 16005125 (Version 1)
Quarter: 2019Q1

REPORT INFORMATION
  Report Type: Spontaneous
  Country: US (occurrence: US)
  Receive Date: 20190226
  Receipt Date: 20190226
  Transmission Date: 20190418
  Serious: Yes (Other)
  Sender: FDA-Public Use
  Company Number: US-ALKEM LABORATORIES LIMITED-US-ALKEM-2019-01552

PATIENT
  Age: 89 Year
  Sex: Female

DRUGS (6)
  1. MEMANTINE. [Concomitant]
     Active Substance: MEMANTINE
     Indication: DEMENTIA
     Dosage: UNK
     Route: 065
  2. DONEPEZIL. [Concomitant]
     Active Substance: DONEPEZIL
     Indication: DEPRESSION
  3. QUETIAPINE FUMARATE. [Suspect]
     Active Substance: QUETIAPINE FUMARATE
     Indication: DEMENTIA
     Dosage: UNK
     Route: 065
  4. QUETIAPINE FUMARATE. [Suspect]
     Active Substance: QUETIAPINE FUMARATE
     Indication: DEPRESSION
  5. MEMANTINE. [Concomitant]
     Active Substance: MEMANTINE
     Indication: DEPRESSION
  6. DONEPEZIL. [Concomitant]
     Active Substance: DONEPEZIL
     Indication: DEMENTIA
     Dosage: UNK
     Route: 065

REACTIONS (2)
  - Mental status changes [Recovered/Resolved]
  - Urinary retention [Recovered/Resolved]
